FAERS Safety Report 10219419 (Version 1)
Quarter: 2014Q2

REPORT INFORMATION
  Report Type: Spontaneous
  Country: US (occurrence: US)
  Receive Date: 20140605
  Receipt Date: 20140605
  Transmission Date: 20141212
  Serious: Yes (Hospitalization, Other)
  Sender: FDA-Public Use
  Company Number: US-JNJFOC-20140518442

PATIENT
  Age: 54 Year
  Sex: Female
  Weight: 56.7 kg

DRUGS (4)
  1. SIMPONI [Suspect]
     Indication: RHEUMATOID ARTHRITIS
     Route: 058
     Dates: start: 201308, end: 20131202
  2. METHOTREXATE [Suspect]
     Indication: RHEUMATOID ARTHRITIS
     Dosage: DOSE: 0.9 CC
     Route: 030
     Dates: end: 201312
  3. XARELTO [Concomitant]
     Indication: PULMONARY EMBOLISM
     Route: 048
     Dates: start: 201401
  4. XARELTO [Concomitant]
     Indication: PULMONARY EMBOLISM
     Route: 048
     Dates: start: 20140106, end: 201401

REACTIONS (4)
  - Pulmonary embolism [Recovered/Resolved]
  - Drug eruption [Not Recovered/Not Resolved]
  - Cellulitis [Recovered/Resolved]
  - Infection [Not Recovered/Not Resolved]
